FAERS Safety Report 9551058 (Version 2)
Quarter: 2013Q4

REPORT INFORMATION
  Report Type: Spontaneous
  Country: JP (occurrence: JP)
  Receive Date: 20130925
  Receipt Date: 20131008
  Transmission Date: 20140711
  Serious: Yes (Hospitalization, Disabling)
  Sender: FDA-Public Use
  Company Number: JP-PFIZER INC-2013271404

PATIENT
  Age: 52 Year
  Sex: Female
  Weight: 70 kg

DRUGS (3)
  1. SOLU-MEDROL [Suspect]
     Indication: THROMBOTIC THROMBOCYTOPENIC PURPURA
     Dosage: 1 G, 1X/DAY
     Route: 041
     Dates: start: 2010
  2. SOLU-MEDROL [Suspect]
     Indication: NEPHROTIC SYNDROME
  3. ALCOHOL [Suspect]

REACTIONS (1)
  - Osteonecrosis [Unknown]
